FAERS Safety Report 24908977 (Version 1)
Quarter: 2025Q1

REPORT INFORMATION
  Report Type: Report from Study
  Country: CN (occurrence: CN)
  Receive Date: 20250131
  Receipt Date: 20250131
  Transmission Date: 20250409
  Serious: Yes (Other)
  Sender: GILEAD
  Company Number: CN-GILEAD-2025-0700983

PATIENT
  Age: 63 Year
  Sex: Female

DRUGS (6)
  1. SACITUZUMAB GOVITECAN-HZIY [Suspect]
     Active Substance: SACITUZUMAB GOVITECAN-HZIY
     Indication: Breast cancer
     Dosage: UNK C1D1
     Route: 065
     Dates: start: 20241106
  2. SACITUZUMAB GOVITECAN-HZIY [Suspect]
     Active Substance: SACITUZUMAB GOVITECAN-HZIY
     Dosage: UNK C1D8
     Route: 065
     Dates: start: 20241113
  3. SACITUZUMAB GOVITECAN-HZIY [Suspect]
     Active Substance: SACITUZUMAB GOVITECAN-HZIY
     Dosage: 345 MG, Q3WK
     Route: 065
     Dates: start: 20241202
  4. SACITUZUMAB GOVITECAN-HZIY [Suspect]
     Active Substance: SACITUZUMAB GOVITECAN-HZIY
     Route: 065
     Dates: start: 20241217
  5. SACITUZUMAB GOVITECAN-HZIY [Suspect]
     Active Substance: SACITUZUMAB GOVITECAN-HZIY
     Dosage: 345 MG, Q4WK C3D1
     Route: 065
     Dates: start: 20241230
  6. SACITUZUMAB GOVITECAN-HZIY [Suspect]
     Active Substance: SACITUZUMAB GOVITECAN-HZIY
     Dosage: 345 MG, Q4WK
     Route: 065
     Dates: start: 20250113

REACTIONS (7)
  - Agranulocytosis [Recovering/Resolving]
  - Neutrophil count decreased [Unknown]
  - Granulocyte count decreased [Recovering/Resolving]
  - Asthenia [Unknown]
  - Alopecia [Unknown]
  - Fatigue [Unknown]
  - Product use issue [Unknown]
